FAERS Safety Report 8427197-0 (Version None)
Quarter: 2012Q2

REPORT INFORMATION
  Report Type: 
  Country: None (occurrence: None)
  Receive Date: 20120611
  Receipt Date: 20120604
  Transmission Date: 20120825
  Serious: Yes (Other)
  Sender: FDA-Public Use
  Company Number: VE-PFIZER INC-2012128136

PATIENT
  Age: 54 Year
  Sex: Male

DRUGS (3)
  1. LYRICA [Suspect]
     Indication: PAIN
  2. LIPITOR [Suspect]
     Indication: HYPERCHOLESTEROLAEMIA
     Dosage: 80 MG, 1X/DAY
     Route: 048
  3. LYRICA [Suspect]
     Indication: LEG AMPUTATION
     Dosage: 150 MG, 1X/DAY
     Route: 048
     Dates: start: 20120504

REACTIONS (2)
  - INFECTION [None]
  - AMNESIA [None]
